FAERS Safety Report 5021384-X (Version None)
Quarter: 2006Q2

REPORT INFORMATION
  Report Type: 
  Country: None (occurrence: None)
  Receive Date: 20060605
  Receipt Date: 20060526
  Transmission Date: 20061013
  Serious: Yes (Other)
  Sender: FDA-Public Use
  Company Number: 2006016555

PATIENT
  Age: 48 Year
  Sex: Male
  Weight: 81.6475 kg

DRUGS (6)
  1. NEURONTIN [Suspect]
     Indication: TRIGEMINAL NEURALGIA
     Dosage: 4800 MG (800 MG, 6 IN 1 D), ORAL
     Route: 048
     Dates: start: 20051201
  2. TOPAMAX [Suspect]
     Indication: PAIN
     Dosage: 25 MG (1 D), UNKNOWN
     Dates: start: 20060109, end: 20060101
  3. PERCOCET (OXYDODONE HYDROCHLORIDE, PARACETAMOL) [Concomitant]
  4. KLONOPIN [Concomitant]
  5. MORPHINE SULFATE [Concomitant]
  6. DILTIAZEM [Concomitant]

REACTIONS (5)
  - DRUG INEFFECTIVE [None]
  - FEELING ABNORMAL [None]
  - INAPPROPRIATE SCHEDULE OF DRUG ADMINISTRATION [None]
  - SUICIDAL IDEATION [None]
  - TREATMENT NONCOMPLIANCE [None]
